FAERS Safety Report 7801330-3 (Version None)
Quarter: 2011Q4

REPORT INFORMATION
  Report Type: 
  Country: None (occurrence: None)
  Receive Date: 20111006
  Receipt Date: 20111006
  Transmission Date: 20120403
  Serious: Yes (Hospitalization)
  Sender: FDA-Public Use
  Company Number: None

PATIENT
  Age: 86 Year
  Sex: Female
  Weight: 56.3 kg

DRUGS (12)
  1. PHENERGAN HCL [Concomitant]
  2. DILAUDID [Suspect]
     Indication: MUSCULOSKELETAL PAIN
     Dosage: 2MG X 2 SEPARATE DOSES  @1520 ; @2042 IV  RECENT
     Route: 042
  3. AROMASIN [Concomitant]
  4. COMPAZINE [Concomitant]
  5. DUONEB [Concomitant]
  6. HALCION [Concomitant]
  7. MAGIC MOUTHWASH [Concomitant]
  8. NEURONTIN [Concomitant]
  9. MAGNESIUM [Concomitant]
  10. GUAINFENESIN/CODEINE [Concomitant]
  11. INDOMETHACIN [Concomitant]
  12. CARDIZEM [Concomitant]

REACTIONS (4)
  - TACHYCARDIA [None]
  - HYPOTENSION [None]
  - OXYGEN SATURATION DECREASED [None]
  - RESPIRATORY DISORDER [None]
